FAERS Safety Report 10683806 (Version 2)
Quarter: 2015Q1

REPORT INFORMATION
  Report Type: Spontaneous
  Country: DK (occurrence: DK)
  Receive Date: 20141230
  Receipt Date: 20150108
  Transmission Date: 20150720
  Serious: Yes (Hospitalization, Disabling)
  Sender: FDA-Public Use
  Company Number: DK-PFIZER INC-2014358656

PATIENT
  Sex: Male

DRUGS (3)
  1. SIMVASTATIN ^ACTAVIS^ [Suspect]
     Active Substance: SIMVASTATIN
     Indication: BLOOD CHOLESTEROL INCREASED
     Dosage: UNK
     Route: 065
     Dates: start: 201107, end: 20121002
  2. ATORVASTATIN ^KRKA^ [Suspect]
     Active Substance: ATORVASTATIN
     Indication: BLOOD CHOLESTEROL INCREASED
     Dosage: 80 MG, UNK
     Route: 065
     Dates: start: 20121002, end: 20130114
  3. PENICILLIN [Concomitant]
     Active Substance: PENICILLIN
     Indication: LOCALISED INFECTION
     Route: 065

REACTIONS (12)
  - Rash [Unknown]
  - Liver disorder [Unknown]
  - Gait disturbance [Not Recovered/Not Resolved]
  - Eye oedema [Unknown]
  - Localised oedema [Unknown]
  - Interstitial lung disease [Unknown]
  - Dyspnoea [Not Recovered/Not Resolved]
  - Rhabdomyolysis [Unknown]
  - Asthenia [Recovered/Resolved]
  - Oedema peripheral [Not Recovered/Not Resolved]
  - Pulmonary embolism [Unknown]
  - Myopathy [Unknown]
